FAERS Safety Report 7380731-4 (Version None)
Quarter: 2011Q1

REPORT INFORMATION
  Report Type: 
  Country: None (occurrence: None)
  Receive Date: 20110329
  Receipt Date: 20110318
  Transmission Date: 20110831
  Serious: Yes (Death, Hospitalization)
  Sender: FDA-Public Use
  Company Number: A0730987A

PATIENT
  Age: 65 Year
  Sex: Male

DRUGS (13)
  1. LORTAB [Concomitant]
  2. MOUTH WASH [Concomitant]
  3. LODINE [Concomitant]
  4. ASCORBIC ACID [Concomitant]
  5. GLUCOTROL [Concomitant]
  6. ASPIRIN [Concomitant]
  7. POTASSIUM [Concomitant]
  8. NIFEREX [Concomitant]
  9. DEMADEX [Concomitant]
  10. VITAMIN TAB [Concomitant]
  11. AVAPRO [Concomitant]
  12. AVANDIA [Suspect]
     Dosage: 8MG PER DAY
     Route: 048
     Dates: start: 20000101, end: 20061201
  13. COLACE [Concomitant]

REACTIONS (5)
  - CORONARY ARTERY DISEASE [None]
  - CARDIAC FAILURE CONGESTIVE [None]
  - PNEUMONIA [None]
  - CARDIO-RESPIRATORY ARREST [None]
  - ACUTE RESPIRATORY FAILURE [None]
